FAERS Safety Report 13987742 (Version 2)
Quarter: 2018Q1

REPORT INFORMATION
  Report Type: Spontaneous
  Country: FR (occurrence: FR)
  Receive Date: 20170919
  Receipt Date: 20180112
  Transmission Date: 20180508
  Serious: Yes (Other)
  Sender: FDA-Public Use
  Company Number: FR-MERCK KGAA-2026825

PATIENT
  Age: 83 Year
  Sex: Female

DRUGS (1)
  1. NOVOTHYROX [Suspect]
     Active Substance: LEVOTHYROXINE SODIUM
     Indication: POST PROCEDURAL HYPOTHYROIDISM
     Dates: start: 201705, end: 201712

REACTIONS (10)
  - Asthenia [Recovered/Resolved]
  - Thyroid function test abnormal [None]
  - Syncope [None]
  - Muscle spasms [None]
  - Paralysis [Recovered/Resolved]
  - Headache [None]
  - Myalgia [Recovered/Resolved]
  - Gait disturbance [Recovered/Resolved]
  - Vertigo [None]
  - Hyperhidrosis [None]

NARRATIVE: CASE EVENT DATE: 2017
